FAERS Safety Report 23488573 (Version 1)
Quarter: 2024Q1

REPORT INFORMATION
  Report Type: Spontaneous
  Country: US (occurrence: US)
  Receive Date: 20240206
  Receipt Date: 20240206
  Transmission Date: 20240409
  Serious: No
  Sender: FDA-Public Use
  Company Number: US-SANOFI-01927664

PATIENT
  Age: 59 Year
  Sex: Female

DRUGS (1)
  1. DUPIXENT [Suspect]
     Active Substance: DUPILUMAB
     Indication: Eosinophil count increased
     Dosage: 300 MG

REACTIONS (6)
  - Injection site swelling [Unknown]
  - Peripheral swelling [Unknown]
  - Injection site induration [Unknown]
  - Injection site warmth [Unknown]
  - Off label use [Unknown]
  - Product use in unapproved indication [Unknown]
